FAERS Safety Report 4349352-1 (Version None)
Quarter: 2004Q2

REPORT INFORMATION
  Report Type: 
  Country: None (occurrence: None)
  Receive Date: 20040428
  Receipt Date: 20040420
  Transmission Date: 20050107
  Serious: Yes (Hospitalization)
  Sender: FDA-Public Use
  Company Number: PHNU2004DE01563

PATIENT
  Age: 49 Year
  Sex: Female

DRUGS (15)
  1. CLOZARIL [Suspect]
     Indication: SCHIZOPHRENIA
     Dosage: UP TO 500 MG/DAY
     Route: 048
     Dates: start: 19940101, end: 19980801
  2. CLOZARIL [Suspect]
     Dosage: 350 MG/DAY
     Route: 048
     Dates: start: 19990701, end: 20000701
  3. CLOZARIL [Suspect]
     Dosage: 300 MG/DAY
     Route: 048
     Dates: start: 20000701, end: 20000701
  4. CLOZARIL [Suspect]
     Dosage: 250 MG/DAY
     Route: 048
     Dates: start: 20000701
  5. CLOZARIL [Suspect]
     Dosage: UP TO 450 MG/DAY
     Dates: start: 19980801, end: 19990701
  6. TRUXAL [Suspect]
     Dosage: UNKNOWN
     Route: 048
     Dates: end: 19980801
  7. TRUXAL [Suspect]
     Dosage: 160 MG/DAY
     Route: 048
     Dates: start: 19990701, end: 20000629
  8. TRUXAL [Suspect]
     Dosage: 230 MG/DAY
     Route: 048
     Dates: start: 20000630, end: 20000630
  9. TRUXAL [Suspect]
     Dosage: 280 MG/DAY
     Route: 048
     Dates: start: 20000701, end: 20000701
  10. TRUXAL [Suspect]
     Dosage: 350 MG/DAY
     Route: 048
     Dates: start: 20000702, end: 20000702
  11. TRUXAL [Suspect]
     Dosage: 220 MG/DAY
     Route: 048
     Dates: start: 19980801
  12. RISPERDAL [Suspect]
     Dosage: 2 MG/DAY
     Route: 048
     Dates: start: 19980901, end: 20000629
  13. RISPERDAL [Suspect]
     Dosage: 4 MG/DAY
     Route: 048
     Dates: start: 20000630
  14. DOCITON [Concomitant]
     Dosage: 60 MG/DAY
     Route: 048
     Dates: start: 19980801
  15. L-THYROXIN ^HENNING BERLIN^ [Concomitant]
     Dosage: 125 A?G/DAY
     Route: 048

REACTIONS (5)
  - DISTURBANCE IN ATTENTION [None]
  - DRUG INTERACTION [None]
  - DRUG LEVEL INCREASED [None]
  - ELECTROENCEPHALOGRAM ABNORMAL [None]
  - GRAND MAL CONVULSION [None]
